FAERS Safety Report 4541616-1 (Version None)
Quarter: 2004Q4

REPORT INFORMATION
  Report Type: 
  Country: None (occurrence: None)
  Receive Date: 20041227
  Receipt Date: 20041222
  Transmission Date: 20050328
  Serious: Yes (Hospitalization)
  Sender: FDA-Public Use
  Company Number: 2004-11-1293

PATIENT
  Age: 55 Year
  Sex: Female
  Weight: 59 kg

DRUGS (2)
  1. VIRAFERONPEG [Suspect]
     Indication: HEPATITIS C
     Dosage: 90 UG QW SUBCUTANEOUS
     Route: 058
     Dates: start: 20040101, end: 20041201
  2. REBETOL [Suspect]
     Indication: HEPATITIS C
     Dosage: 800 MG QD ORAL
     Route: 048
     Dates: start: 20040101, end: 20041201

REACTIONS (3)
  - ERYTHEMA NODOSUM [None]
  - LYMPHADENOPATHY [None]
  - SARCOIDOSIS [None]
